FAERS Safety Report 8027107-4 (Version None)
Quarter: 2012Q1

REPORT INFORMATION
  Report Type: 
  Country: None (occurrence: None)
  Receive Date: 20120106
  Receipt Date: 20111230
  Transmission Date: 20120608
  Serious: Yes (Other)
  Sender: FDA-Public Use
  Company Number: PHEH2011US010442

PATIENT
  Age: 30 Year
  Sex: Male
  Weight: 126.98 kg

DRUGS (5)
  1. BACLOFEN [Concomitant]
     Dosage: 10 MG, BID-QID PRN
     Route: 048
  2. ANTIHYPERTENSIVES [Concomitant]
     Dosage: UNK UKN, UNK
  3. GILENYA [Suspect]
     Indication: MULTIPLE SCLEROSIS
     Dosage: 0.5 MG, DAILY
     Route: 048
     Dates: start: 20110419
  4. DILANTIN [Concomitant]
     Indication: CONVULSION
     Dosage: UNK UKN, UNK
  5. DILANTIN [Concomitant]
     Dosage: UNK UKN, UNK

REACTIONS (6)
  - CONVULSION [None]
  - MUSCLE SPASMS [None]
  - PRODUCTIVE COUGH [None]
  - HYPOTENSION [None]
  - PAIN IN EXTREMITY [None]
  - BACK PAIN [None]
